FAERS Safety Report 21883416 (Version 1)
Quarter: 2023Q1

REPORT INFORMATION
  Report Type: Spontaneous
  Country: US (occurrence: US)
  Receive Date: 20230119
  Receipt Date: 20230119
  Transmission Date: 20230417
  Serious: Yes (Other)
  Sender: FDA-Public Use
  Company Number: US-JNJFOC-20230120798

PATIENT
  Sex: Male

DRUGS (3)
  1. INVEGA SUSTENNA [Suspect]
     Active Substance: PALIPERIDONE PALMITATE
     Indication: Product used for unknown indication
     Dosage: LAST APPLICATION RECEIVED DATE: 10-JAN-2023
     Route: 030
     Dates: start: 20220122
  2. INVEGA SUSTENNA [Suspect]
     Active Substance: PALIPERIDONE PALMITATE
  3. INVEGA SUSTENNA [Suspect]
     Active Substance: PALIPERIDONE PALMITATE

REACTIONS (8)
  - Muscle rupture [Unknown]
  - Anuria [Unknown]
  - Dizziness [Unknown]
  - Injection site discharge [Unknown]
  - Plicated tongue [Unknown]
  - Tongue blistering [Unknown]
  - Diarrhoea [Unknown]
  - Constipation [Unknown]
